FAERS Safety Report 20193498 (Version 1)
Quarter: 2021Q4

REPORT INFORMATION
  Report Type: Spontaneous
  Country: US (occurrence: US)
  Receive Date: 20211216
  Receipt Date: 20211216
  Transmission Date: 20220303
  Serious: No
  Sender: FDA-Public Use
  Company Number: US-CURRAX PHARMACEUTICALS LLC-US-2021CUR000054

PATIENT
  Age: 73 Year
  Sex: Male

DRUGS (3)
  1. ZOHYDRO [Suspect]
     Active Substance: HYDROCODONE BITARTRATE
     Indication: Pain management
     Dosage: UNK
     Route: 048
     Dates: start: 2012
  2. ZOHYDRO [Suspect]
     Active Substance: HYDROCODONE BITARTRATE
     Dosage: UNK
     Route: 048
  3. OXYCONTIN [Concomitant]
     Active Substance: OXYCODONE HYDROCHLORIDE
     Indication: Product used for unknown indication
     Dosage: UNK

REACTIONS (11)
  - Dry eye [Recovering/Resolving]
  - Quality of life decreased [Recovered/Resolved]
  - Joint swelling [Recovered/Resolved]
  - Salivary gland calculus [Recovering/Resolving]
  - Salivary gland enlargement [Recovering/Resolving]
  - Synovial disorder [Recovering/Resolving]
  - Bone disorder [Recovering/Resolving]
  - Dry mouth [Recovering/Resolving]
  - Back pain [Recovered/Resolved]
  - Arthralgia [Recovering/Resolving]
  - Insomnia [Recovering/Resolving]

NARRATIVE: CASE EVENT DATE: 20210527
